FAERS Safety Report 10048039 (Version 1)
Quarter: 2014Q1

REPORT INFORMATION
  Report Type: Spontaneous
  Country: IN (occurrence: IN)
  Receive Date: 20140331
  Receipt Date: 20140331
  Transmission Date: 20141002
  Serious: Yes (Death, Hospitalization, Other)
  Sender: FDA-Public Use
  Company Number: IN-WATSON-2014-05710

PATIENT
  Age: 9 Year
  Sex: Female
  Weight: 19 kg

DRUGS (4)
  1. STAVUDINE (UNKNOWN) [Suspect]
     Indication: ANTIRETROVIRAL THERAPY
     Dosage: UNK
     Route: 065
  2. SULFAMETHOXAZOLE-TRIMETHOPRIM (WATSON LABORATORIES) [Suspect]
     Indication: PRODUCT USED FOR UNKNOWN INDICATION
     Dosage: UNK
     Route: 065
  3. LAMIVUDINE [Concomitant]
     Indication: ANTIRETROVIRAL THERAPY
     Dosage: UNK
     Route: 065
  4. NEVIRAPINE [Concomitant]
     Indication: ANTIRETROVIRAL THERAPY
     Dosage: UNK
     Route: 065

REACTIONS (3)
  - Pancreatitis acute [Fatal]
  - Respiratory distress [Fatal]
  - Tetany [Recovered/Resolved]
